FAERS Safety Report 12448521 (Version 1)
Quarter: 2016Q2

REPORT INFORMATION
  Report Type: Other
  Country: US (occurrence: US)
  Receive Date: 20160608
  Receipt Date: 20160608
  Transmission Date: 20160815
  Serious: Yes (Other)
  Sender: FDA-Public Use
  Company Number: US-RARE DISEASE THERAPEUTICS, INC.-1053545

PATIENT
  Sex: Female

DRUGS (4)
  1. CARNITINE [Concomitant]
     Active Substance: CARNITINE
  2. CYSTADANE [Suspect]
     Active Substance: BETAINE
     Indication: VITAMIN B12 DEFICIENCY
  3. HYDROXOCOBALAMIN [Concomitant]
     Active Substance: HYDROXOCOBALAMIN
  4. METHYL COBALAMIN / PYRIDOXINE / 5-METHYLTETRAHYDROFOLATE [Concomitant]

REACTIONS (1)
  - Drug ineffective [Unknown]
